FAERS Safety Report 7578115-9 (Version None)
Quarter: 2011Q2

REPORT INFORMATION
  Report Type: 
  Country: None (occurrence: None)
  Receive Date: 20110621
  Receipt Date: 20110616
  Transmission Date: 20111010
  Serious: Yes (Death)
  Sender: FDA-Public Use
  Company Number: 2011SP025541

PATIENT
  Age: 61 Year
  Sex: Male

DRUGS (3)
  1. TEMODAL [Suspect]
     Indication: GLIOBLASTOMA
     Dates: start: 20110314, end: 20110414
  2. DIAZEPAM [Concomitant]
  3. VALPROATE SODIUM [Concomitant]

REACTIONS (3)
  - PNEUMONIA [None]
  - BONE MARROW FAILURE [None]
  - SEPSIS [None]
